FAERS Safety Report 5403707-2 (Version None)
Quarter: 2007Q3

REPORT INFORMATION
  Report Type: 
  Country: None (occurrence: None)
  Receive Date: 20070802
  Receipt Date: 20070725
  Transmission Date: 20080115
  Serious: Yes (Other)
  Sender: FDA-Public Use
  Company Number: US-JNJFOC-20070705678

PATIENT
  Sex: Male

DRUGS (2)
  1. EXTRA STRENGTH TYLENOL [Suspect]
  2. EXTRA STRENGTH TYLENOL [Suspect]
     Indication: PAIN
     Dosage: UNKNOWN

REACTIONS (5)
  - DYSARTHRIA [None]
  - GAIT DISTURBANCE [None]
  - HYPERSENSITIVITY [None]
  - MENTAL IMPAIRMENT [None]
  - SOMNOLENCE [None]
